FAERS Safety Report 6307875-X (Version None)
Quarter: 2009Q3

REPORT INFORMATION
  Report Type: 
  Country: None (occurrence: None)
  Receive Date: 20090813
  Receipt Date: 20090810
  Transmission Date: 20100115
  Serious: Yes (Death)
  Sender: FDA-Public Use
  Company Number: PHHY2009AR33511

PATIENT
  Sex: Male

DRUGS (2)
  1. EXELON [Suspect]
     Dosage: UNK
     Dates: start: 20080301
  2. EXELON [Suspect]
     Dosage: 1 PATCH DAILY
     Dates: start: 20080301, end: 20090401

REACTIONS (1)
  - DEATH [None]
